FAERS Safety Report 4376841-6 (Version None)
Quarter: 2004Q2

REPORT INFORMATION
  Report Type: 
  Country: None (occurrence: None)
  Receive Date: 20040609
  Receipt Date: 20040316
  Transmission Date: 20050107
  Serious: Yes (Other)
  Sender: FDA-Public Use
  Company Number: PHEH2004US03115

PATIENT
  Age: 55 Year
  Sex: Female
  Weight: 60.782 kg

DRUGS (3)
  1. GLEEVEC [Suspect]
     Indication: OVARIAN CANCER
     Dosage: 400 MG BID ORAL
     Route: 048
     Dates: start: 20040305
  2. COUMADIN [Concomitant]
  3. LASIX [Concomitant]

REACTIONS (6)
  - ALOPECIA [None]
  - MADAROSIS [None]
  - MUSCLE CRAMP [None]
  - NAUSEA [None]
  - PERIORBITAL OEDEMA [None]
  - SWELLING FACE [None]
